FAERS Safety Report 24318442 (Version 2)
Quarter: 2024Q4

REPORT INFORMATION
  Report Type: Spontaneous
  Country: US (occurrence: US)
  Receive Date: 20240913
  Receipt Date: 20241107
  Transmission Date: 20250115
  Serious: No
  Sender: MERZ
  Company Number: US-MRZWEB-2024080000044

PATIENT

DRUGS (6)
  1. XEOMIN [Suspect]
     Active Substance: INCOBOTULINUMTOXINA
     Indication: Skin cosmetic procedure
     Dosage: 44 INTERNATIONAL UNIT
     Dates: start: 20240715, end: 20240715
  2. XEOMIN [Suspect]
     Active Substance: INCOBOTULINUMTOXINA
     Indication: Skin wrinkling
     Dosage: 32 INTERNATIONAL UNIT
  3. XEOMIN [Suspect]
     Active Substance: INCOBOTULINUMTOXINA
     Dosage: 41 INTERNATIONAL UNIT
     Dates: start: 20240805, end: 20240805
  4. DYSPORT [BOTULINUM TOXIN TYPE A HAEMAGGLUTININ COMPLEX] [Concomitant]
     Indication: Skin cosmetic procedure
     Dosage: 32 INTERNATIONAL UNIT
  5. DYSPORT [BOTULINUM TOXIN TYPE A HAEMAGGLUTININ COMPLEX] [Concomitant]
     Indication: Skin wrinkling
  6. BOTOX [Concomitant]
     Active Substance: ONABOTULINUMTOXINA

REACTIONS (3)
  - Drug ineffective [Recovered/Resolved]
  - Therapeutic response decreased [Recovered/Resolved]
  - Underdose [Unknown]

NARRATIVE: CASE EVENT DATE: 20240101
